FAERS Safety Report 9334672 (Version 1)
Quarter: 2013Q2

REPORT INFORMATION
  Report Type: Spontaneous
  Country: US (occurrence: US)
  Receive Date: 20130606
  Receipt Date: 20130606
  Transmission Date: 20140414
  Serious: No
  Sender: FDA-Public Use
  Company Number: US-AMGEN-USASP2013034764

PATIENT
  Age: 62 Year
  Sex: Female

DRUGS (7)
  1. PROLIA [Suspect]
     Indication: OSTEOPENIA
     Dosage: 60 MG, Q6MO
     Dates: start: 20120529
  2. MULTIVITAMIN                       /07504101/ [Concomitant]
  3. OCUVITE                            /01053801/ [Concomitant]
  4. CALCIUM WITH VITAMIN D3 [Concomitant]
  5. TRIPLEFLEX [Concomitant]
  6. ASPIRIN [Concomitant]
  7. FISH OIL OMEGA 3 [Concomitant]

REACTIONS (3)
  - Eyelid infection [Not Recovered/Not Resolved]
  - Scab [Not Recovered/Not Resolved]
  - Eczema [Recovered/Resolved]
